FAERS Safety Report 5846003-1 (Version None)
Quarter: 2008Q3

REPORT INFORMATION
  Report Type: 
  Country: None (occurrence: None)
  Receive Date: 20080814
  Receipt Date: 20080811
  Transmission Date: 20090109
  Serious: Yes (Death, Other)
  Sender: FDA-Public Use
  Company Number: US-BAXTER-2008BH005405

PATIENT
  Age: 73 Year
  Sex: Male

DRUGS (1)
  1. HEPARIN SODIUM INJECTION [Suspect]
     Indication: THROMBOSIS
     Dosage: DOSE UNIT:UNKNOWN
     Route: 065
     Dates: start: 20071101, end: 20080107

REACTIONS (5)
  - ASTHENIA [None]
  - DEATH [None]
  - DIZZINESS [None]
  - DYSPNOEA [None]
  - NAUSEA [None]
